FAERS Safety Report 8522526-1 (Version None)
Quarter: 2012Q3

REPORT INFORMATION
  Report Type: 
  Country: None (occurrence: None)
  Receive Date: 20120719
  Receipt Date: 20120710
  Transmission Date: 20120928
  Serious: Yes (Hospitalization)
  Sender: FDA-Public Use
  Company Number: US-ABBOTT-12P-163-0954791-00

PATIENT
  Sex: Male
  Weight: 93.978 kg

DRUGS (2)
  1. HUMIRA [Suspect]
     Indication: RHEUMATOID ARTHRITIS
     Route: 058
  2. PLAVIX [Suspect]
     Indication: ANTICOAGULANT THERAPY
     Dates: end: 20110101

REACTIONS (4)
  - BLADDER PAIN [None]
  - HAEMATURIA [None]
  - CALCULUS BLADDER [None]
  - BLADDER PERFORATION [None]
